FAERS Safety Report 10078899 (Version 1)
Quarter: 2014Q2

REPORT INFORMATION
  Report Type: Spontaneous
  Country: GB (occurrence: None)
  Receive Date: 20140411
  Receipt Date: 20140411
  Transmission Date: 20141212
  Serious: Yes (Other)
  Sender: FDA-Public Use
  Company Number: 2014-000954

PATIENT
  Age: 54 Year
  Sex: Male

DRUGS (4)
  1. SARAFEM [Suspect]
     Indication: DEPRESSED MOOD
     Route: 048
  2. LANSOPRAZOLE (LANSOPRAZOLE) [Concomitant]
  3. RAMIPRIL (RAMIPRIL) [Concomitant]
  4. SIMVASTATIN (SIMVASTATIN) [Concomitant]

REACTIONS (1)
  - Supraventricular tachycardia [None]
